FAERS Safety Report 25311106 (Version 1)
Quarter: 2025Q2

REPORT INFORMATION
  Report Type: Spontaneous
  Country: US (occurrence: US)
  Receive Date: 20250514
  Receipt Date: 20250514
  Transmission Date: 20250717
  Serious: Yes (Other)
  Sender: ACCORD
  Company Number: US-MLMSERVICE-20250425-PI491637-00289-1

PATIENT
  Age: 59 Year
  Sex: Male

DRUGS (3)
  1. ROPINIROLE [Suspect]
     Active Substance: ROPINIROLE
     Indication: Parkinson^s disease
  2. HERBALS [Suspect]
     Active Substance: HERBALS
     Indication: Phytotherapy
  3. CARBIDOPA\LEVODOPA [Concomitant]
     Active Substance: CARBIDOPA\LEVODOPA
     Indication: Parkinson^s disease

REACTIONS (4)
  - Parkinson^s disease psychosis [Recovering/Resolving]
  - Fall [Unknown]
  - Head injury [Unknown]
  - Loss of consciousness [Unknown]
